FAERS Safety Report 7643773-7 (Version None)
Quarter: 2011Q3

REPORT INFORMATION
  Report Type: 
  Country: None (occurrence: None)
  Receive Date: 20110722
  Receipt Date: 20110706
  Transmission Date: 20111222
  Serious: Yes (Hospitalization)
  Sender: FDA-Public Use
  Company Number: 2011MA008420

PATIENT
  Age: 52 Year
  Sex: Female

DRUGS (5)
  1. RISPERIDONE [Suspect]
     Indication: BIPOLAR DISORDER
     Dosage: 8 MG;QD
  2. CHLORPROMAZINE [Suspect]
     Indication: BIPOLAR DISORDER
     Dosage: 500 MG;QD
  3. CARBAMAZEPINE [Suspect]
     Indication: BIPOLAR DISORDER
     Dosage: 600 MG;BID
  4. CLONAZEPAM [Suspect]
     Indication: BIPOLAR DISORDER
     Dosage: 3 MG;QD
  5. PERPHENAZINE [Suspect]
     Indication: BIPOLAR DISORDER
     Dosage: 42 MG;QD

REACTIONS (8)
  - HEPATITIS [None]
  - REFUSAL OF TREATMENT BY PATIENT [None]
  - PHYSICAL ASSAULT [None]
  - GLOSSITIS [None]
  - DYSTONIA [None]
  - DYSPHAGIA [None]
  - PYREXIA [None]
  - HYPOTENSION [None]
